FAERS Safety Report 13925877 (Version 1)
Quarter: 2017Q3

REPORT INFORMATION
  Report Type: Spontaneous
  Country: US (occurrence: US)
  Receive Date: 20170831
  Receipt Date: 20170831
  Transmission Date: 20171127
  Serious: No
  Sender: FDA-Public Use
  Company Number: US-PFIZER INC-2017374869

PATIENT
  Sex: Female

DRUGS (1)
  1. LYRICA [Suspect]
     Active Substance: PREGABALIN
     Indication: DIABETIC NEUROPATHY
     Dosage: 100 MG, 2X/DAY

REACTIONS (6)
  - Drug effect incomplete [Unknown]
  - Arthralgia [Unknown]
  - Chondropathy [Unknown]
  - Arthropathy [Unknown]
  - Crying [Unknown]
  - Somnolence [Unknown]
